FAERS Safety Report 7608485-4 (Version None)
Quarter: 2011Q3

REPORT INFORMATION
  Report Type: 
  Country: None (occurrence: None)
  Receive Date: 20110713
  Receipt Date: 20110713
  Transmission Date: 20111222
  Serious: No
  Sender: FDA-Public Use
  Company Number: None

PATIENT
  Age: 51 Year

DRUGS (1)
  1. OXYCODONE HYDROCHLORIDE [Suspect]
     Indication: PAIN
     Dosage: ORAL, 10 TABLETS A DAY
     Route: 048

REACTIONS (3)
  - PALPITATIONS [None]
  - CHEST PAIN [None]
  - CARDIOVASCULAR DISORDER [None]
